FAERS Safety Report 7595871-4 (Version None)
Quarter: 2011Q3

REPORT INFORMATION
  Report Type: 
  Country: None (occurrence: None)
  Receive Date: 20110707
  Receipt Date: 20110627
  Transmission Date: 20111222
  Serious: Yes (Other)
  Sender: FDA-Public Use
  Company Number: DE-UCBSA-021021

PATIENT
  Sex: Female

DRUGS (2)
  1. UNSPECIFIED ANTIHYPERTENSIVES [Suspect]
  2. KEPPRA [Suspect]

REACTIONS (1)
  - COUGH [None]
